FAERS Safety Report 5390707-4 (Version None)
Quarter: 2007Q3

REPORT INFORMATION
  Report Type: 
  Country: None (occurrence: None)
  Receive Date: 20070716
  Receipt Date: 20070702
  Transmission Date: 20080115
  Serious: No
  Sender: FDA-Public Use
  Company Number: BR-1162916

PATIENT
  Age: 49 Year
  Sex: Female
  Weight: 44.9061 kg

DRUGS (2)
  1. AZOPT [Suspect]
     Indication: GLAUCOMA
     Dosage: EYE DROPS; 1 GTT 1X/8 HOURS
     Route: 047
     Dates: start: 20070425, end: 20070508
  2. OMEPRAZOLE [Concomitant]

REACTIONS (6)
  - ABDOMINAL PAIN [None]
  - ASTHMATIC CRISIS [None]
  - CONDITION AGGRAVATED [None]
  - DYSPNOEA [None]
  - RASH [None]
  - TACHYCARDIA [None]
